FAERS Safety Report 23599963 (Version 1)
Quarter: 2024Q1

REPORT INFORMATION
  Report Type: Other
  Country: CA (occurrence: None)
  Receive Date: 20240306
  Receipt Date: 20240306
  Transmission Date: 20240409
  Serious: No
  Sender: FDA-Public Use
  Company Number: CA-ROCHE-3090219

PATIENT
  Age: 29 Year
  Sex: Female

DRUGS (6)
  1. OCREVUS [Suspect]
     Active Substance: OCRELIZUMAB
     Indication: Relapsing-remitting multiple sclerosis
     Dosage: 600 MG EVERY 6 MONTH
     Route: 042
     Dates: start: 20220418
  2. BOTOX [Concomitant]
     Active Substance: ONABOTULINUMTOXINA
  3. VYVANSE [Concomitant]
     Active Substance: LISDEXAMFETAMINE DIMESYLATE
  4. NORETHINDRONE [Concomitant]
     Active Substance: NORETHINDRONE
  5. VITAMIN C [Concomitant]
     Active Substance: ASCORBIC ACID
  6. VITAMINS [Concomitant]
     Active Substance: VITAMINS

REACTIONS (10)
  - Lung disorder [Recovering/Resolving]
  - Headache [Not Recovered/Not Resolved]
  - Somnolence [Recovered/Resolved]
  - Restless legs syndrome [Recovered/Resolved]
  - Nasopharyngitis [Recovering/Resolving]
  - Migraine [Recovering/Resolving]
  - Nausea [Recovered/Resolved]
  - Ear pruritus [Not Recovered/Not Resolved]
  - Dyspnoea [Not Recovered/Not Resolved]
  - Oral herpes [Unknown]

NARRATIVE: CASE EVENT DATE: 20220418
